FAERS Safety Report 6870054-1 (Version None)
Quarter: 2010Q3

REPORT INFORMATION
  Report Type: 
  Country: None (occurrence: None)
  Receive Date: 20100722
  Receipt Date: 20090911
  Transmission Date: 20110219
  Serious: No
  Sender: FDA-Public Use
  Company Number: US-PFIZER INC-2008061116

PATIENT
  Sex: Female
  Weight: 99.3 kg

DRUGS (2)
  1. CHANTIX [Suspect]
     Dosage: 0.5 MG, UNK
     Route: 048
     Dates: start: 20080601, end: 20080101
  2. VALSARTAN [Concomitant]
     Indication: BLOOD PRESSURE
     Route: 048

REACTIONS (2)
  - ABNORMAL DREAMS [None]
  - CHEST PAIN [None]
